FAERS Safety Report 5256190-4 (Version None)
Quarter: 2007Q1

REPORT INFORMATION
  Report Type: 
  Country: None (occurrence: None)
  Receive Date: 20070306
  Receipt Date: 20070223
  Transmission Date: 20070707
  Serious: Yes (Hospitalization)
  Sender: FDA-Public Use
  Company Number: DE-AVENTIS-200710496DE

PATIENT
  Age: 67 Year
  Sex: Female
  Weight: 70 kg

DRUGS (5)
  1. DOCETAXEL [Suspect]
     Route: 041
     Dates: start: 20070130, end: 20070130
  2. GEMCITABINE [Concomitant]
     Route: 041
     Dates: start: 20070130, end: 20070130
  3. GEMCITABINE [Concomitant]
     Route: 041
     Dates: start: 20070206, end: 20070206
  4. NAVOBAN [Concomitant]
     Route: 041
     Dates: start: 20070130, end: 20070131
  5. FORTECORTIN                        /00016001/ [Concomitant]
     Route: 041
     Dates: start: 20070130, end: 20070131

REACTIONS (2)
  - APHASIA [None]
  - DIZZINESS [None]
